FAERS Safety Report 16841427 (Version 2)
Quarter: 2019Q3

REPORT INFORMATION
  Report Type: Spontaneous
  Country: US (occurrence: US)
  Receive Date: 20190923
  Receipt Date: 20190924
  Transmission Date: 20191005
  Serious: No
  Sender: FDA-Public Use
  Company Number: US-PFIZER INC-2019403405

PATIENT
  Age: 89 Year
  Sex: Male
  Weight: 159.8 kg

DRUGS (1)
  1. LATANOPROST. [Suspect]
     Active Substance: LATANOPROST
     Indication: GLAUCOMA
     Dosage: 2 GTT, 1X/DAY (7.5 MG (1 DROP EACH EYE AT NIGHT))
     Route: 047
     Dates: start: 2018

REACTIONS (4)
  - Eye pain [Not Recovered/Not Resolved]
  - Hypoacusis [Unknown]
  - Eye irritation [Not Recovered/Not Resolved]
  - Sleep disorder [Unknown]
